FAERS Safety Report 10043004 (Version 1)
Quarter: 2014Q1

REPORT INFORMATION
  Report Type: Spontaneous
  Country: US (occurrence: US)
  Receive Date: 20140328
  Receipt Date: 20140328
  Transmission Date: 20141002
  Serious: Yes (Hospitalization)
  Sender: FDA-Public Use
  Company Number: US-BIOGENIDEC-2014BI026578

PATIENT
  Age: 15 Year
  Sex: Female

DRUGS (1)
  1. TYSABRI [Suspect]
     Indication: CROHN^S DISEASE
     Route: 042
     Dates: start: 20140109

REACTIONS (5)
  - Haematochezia [Unknown]
  - Diarrhoea [Unknown]
  - Pyrexia [Unknown]
  - Fatigue [Unknown]
  - Off label use [Not Recovered/Not Resolved]
